FAERS Safety Report 4495674-3 (Version None)
Quarter: 2004Q4

REPORT INFORMATION
  Report Type: 
  Country: None (occurrence: None)
  Receive Date: 20041108
  Receipt Date: 20041101
  Transmission Date: 20050328
  Serious: Yes (Other)
  Sender: FDA-Public Use
  Company Number: JP-MERCK-0411USA00690

PATIENT
  Age: 60 Year
  Sex: Male

DRUGS (6)
  1. COZAAR [Suspect]
     Indication: HYPERTENSION
     Route: 048
     Dates: start: 20000506, end: 20041016
  2. OMEPRAL [Suspect]
     Route: 048
     Dates: start: 20021121
  3. NORVASC [Concomitant]
     Route: 048
     Dates: start: 20000203
  4. GLYBURIDE [Concomitant]
     Route: 048
     Dates: end: 20040925
  5. BASEN [Concomitant]
     Route: 048
     Dates: start: 20040424
  6. JUVELA NICOTINATE [Concomitant]
     Route: 048

REACTIONS (2)
  - MYALGIA [None]
  - RHABDOMYOLYSIS [None]
